FAERS Safety Report 25532489 (Version 1)
Quarter: 2025Q3

REPORT INFORMATION
  Report Type: Spontaneous
  Country: ZA (occurrence: ZA)
  Receive Date: 20250709
  Receipt Date: 20250709
  Transmission Date: 20251021
  Serious: Yes (Other)
  Sender: UCB
  Company Number: ZA-UCBSA-2025040951

PATIENT
  Age: 33 Year
  Sex: Female

DRUGS (4)
  1. LEVETIRACETAM [Suspect]
     Active Substance: LEVETIRACETAM
     Indication: Epilepsy
  2. PROPRANOLOL [Suspect]
     Active Substance: PROPRANOLOL HYDROCHLORIDE
     Indication: Portal hypertensive gastropathy
  3. FUROSEMIDE [Suspect]
     Active Substance: FUROSEMIDE
     Indication: Portal hypertensive gastropathy
  4. SPIRONOLACTONE [Suspect]
     Active Substance: SPIRONOLACTONE
     Indication: Portal hypertensive gastropathy

REACTIONS (4)
  - Premature delivery [Unknown]
  - Thrombocytopenia [Unknown]
  - Caesarean section [Unknown]
  - Maternal exposure during pregnancy [Unknown]
